FAERS Safety Report 12350988 (Version 2)
Quarter: 2020Q1

REPORT INFORMATION
  Report Type: Report from Study
  Country: GB (occurrence: US)
  Receive Date: 20160510
  Receipt Date: 20200224
  Transmission Date: 20200409
  Serious: Yes (Hospitalization, Other)
  Sender: FDA-Public Use
  Company Number: US-ASTELLAS-2016US017601

PATIENT
  Age: 38 Year
  Sex: Female
  Weight: 101 kg

DRUGS (3)
  1. ERLOTINIB [Suspect]
     Active Substance: ERLOTINIB
     Indication: NON-SMALL CELL LUNG CANCER
     Route: 048
     Dates: start: 20150804
  2. BEVACIZUMAB. [Suspect]
     Active Substance: BEVACIZUMAB
     Indication: NON-SMALL CELL LUNG CANCER
     Route: 042
     Dates: end: 20160216
  3. LIDOCAINE HCL [Concomitant]
     Active Substance: LIDOCAINE HYDROCHLORIDE
     Indication: PRODUCT USED FOR UNKNOWN INDICATION
     Dosage: UNK UNK, UNKNOWN FREQ.
     Route: 065

REACTIONS (3)
  - Angina pectoris [Unknown]
  - Musculoskeletal pain [Unknown]
  - Pain in extremity [Unknown]

NARRATIVE: CASE EVENT DATE: 20160226
